FAERS Safety Report 16956560 (Version 2)
Quarter: 2023Q2

REPORT INFORMATION
  Report Type: Other
  Country: DE (occurrence: None)
  Receive Date: 20191024
  Receipt Date: 20230417
  Transmission Date: 20230722
  Serious: Yes (Hospitalization)
  Sender: FDA-Public Use
  Company Number: DE-ROCHE-2444024

PATIENT
  Age: 25 Year
  Sex: Female

DRUGS (8)
  1. OCRELIZUMAB [Suspect]
     Active Substance: OCRELIZUMAB
     Indication: Multiple sclerosis
     Dosage: ON 06/JUN.2018
     Route: 042
     Dates: start: 20190314
  2. OCRELIZUMAB [Suspect]
     Active Substance: OCRELIZUMAB
     Indication: Multiple sclerosis
     Route: 042
     Dates: start: 20180823, end: 20180906
  3. MAXIM (GERMANY) [Concomitant]
     Route: 048
  4. ACETAMINOPHEN [Concomitant]
     Active Substance: ACETAMINOPHEN
     Route: 041
     Dates: start: 20180823, end: 20180823
  5. PREDNISOLONE [Concomitant]
     Active Substance: PREDNISOLONE
     Route: 041
     Dates: start: 20180823, end: 20180823
  6. DIMETHINDENE [Concomitant]
     Active Substance: DIMETHINDENE
     Route: 041
     Dates: start: 20180823, end: 20180823
  7. INTERFERON BETA-1A [Concomitant]
     Active Substance: INTERFERON BETA-1A
     Dates: start: 2010, end: 2015
  8. NATALIZUMAB [Concomitant]
     Active Substance: NATALIZUMAB
     Dates: start: 20151023, end: 20180710

REACTIONS (1)
  - Pneumonia [Recovered/Resolved]

NARRATIVE: CASE EVENT DATE: 20190730
